FAERS Safety Report 22618479 (Version 2)
Quarter: 2023Q2

REPORT INFORMATION
  Report Type: Spontaneous
  Country: US (occurrence: US)
  Receive Date: 20230620
  Receipt Date: 20230627
  Transmission Date: 20230722
  Serious: Yes (Hospitalization)
  Sender: FDA-Public Use
  Company Number: US-ABBVIE-5295388

PATIENT
  Age: 62 Year
  Sex: Female
  Weight: 56.245 kg

DRUGS (2)
  1. HUMIRA [Suspect]
     Active Substance: ADALIMUMAB
     Indication: Rheumatoid arthritis
     Route: 058
  2. ALBUTEROL\IPRATROPIUM [Suspect]
     Active Substance: ALBUTEROL\IPRATROPIUM
     Indication: Product used for unknown indication
     Dosage: NEBULIZER
     Route: 065

REACTIONS (9)
  - Pseudomonas infection [Recovering/Resolving]
  - Oral candidiasis [Recovered/Resolved]
  - Chronic obstructive pulmonary disease [Not Recovered/Not Resolved]
  - Gingival pain [Not Recovered/Not Resolved]
  - Malaise [Recovering/Resolving]
  - Gingival swelling [Not Recovered/Not Resolved]
  - Gingivitis [Not Recovered/Not Resolved]
  - Gingival discomfort [Not Recovered/Not Resolved]
  - Hypersomnia [Unknown]

NARRATIVE: CASE EVENT DATE: 20230301
